FAERS Safety Report 10886497 (Version 1)
Quarter: 2015Q1

REPORT INFORMATION
  Report Type: Spontaneous
  Country: US (occurrence: None)
  Receive Date: 20150227
  Receipt Date: 20150227
  Transmission Date: 20150721
  Serious: Yes (Hospitalization)
  Sender: FDA-Public Use
  Company Number: None

PATIENT
  Age: 64 Year
  Sex: Female
  Weight: 63.6 kg

DRUGS (2)
  1. METRONIDAZOLE. [Suspect]
     Active Substance: METRONIDAZOLE
     Indication: CLOSTRIDIUM DIFFICILE INFECTION
     Route: 048
     Dates: start: 20140611, end: 20140619
  2. METOCLOPRAMIDE. [Suspect]
     Active Substance: METOCLOPRAMIDE
     Indication: RETCHING
     Route: 048
     Dates: start: 20140610, end: 20140620

REACTIONS (14)
  - Nausea [None]
  - Hyperhidrosis [None]
  - Confusional state [None]
  - Electrolyte imbalance [None]
  - Tachycardia [None]
  - Respiratory failure [None]
  - Dyspnoea at rest [None]
  - Alcohol withdrawal syndrome [None]
  - Vomiting [None]
  - Seizure [None]
  - Chronic obstructive pulmonary disease [None]
  - Hypomagnesaemia [None]
  - Fatigue [None]
  - Pneumonia aspiration [None]

NARRATIVE: CASE EVENT DATE: 20140619
